FAERS Safety Report 22270196 (Version 1)
Quarter: 2023Q2

REPORT INFORMATION
  Report Type: Spontaneous
  Country: US (occurrence: US)
  Receive Date: 20230501
  Receipt Date: 20230501
  Transmission Date: 20230722
  Serious: Yes (Other)
  Sender: FDA-Public Use
  Company Number: US-ORGANON-O2304USA002110

PATIENT
  Age: 54 Year
  Sex: Male

DRUGS (12)
  1. COZAAR [Suspect]
     Active Substance: LOSARTAN POTASSIUM
     Dosage: UNK
     Route: 048
  2. REMODULIN [Suspect]
     Active Substance: TREPROSTINIL
     Indication: Pulmonary arterial hypertension
     Dosage: STRENGTH REPORTED AS 2.5 MG/ML, DOSE: 0.017 MICROGRAM PER KILOGRAM
     Route: 058
     Dates: start: 202301, end: 2023
  3. REMODULIN [Suspect]
     Active Substance: TREPROSTINIL
     Dosage: 0.018 MICROGRAM PER KILOGRAM
     Route: 058
     Dates: start: 2023, end: 2023
  4. REMODULIN [Suspect]
     Active Substance: TREPROSTINIL
     Dosage: (AT A INFUSION RATE OF 36 UL/HR)
     Route: 058
     Dates: start: 20230206, end: 2023
  5. REMODULIN [Suspect]
     Active Substance: TREPROSTINIL
     Dosage: 0.02125 MICROGRAM PER KILOGRAM
     Route: 058
     Dates: start: 2023, end: 2023
  6. REMODULIN [Suspect]
     Active Substance: TREPROSTINIL
     Dosage: UNK
     Route: 058
     Dates: start: 202301, end: 20230212
  7. REMODULIN [Suspect]
     Active Substance: TREPROSTINIL
     Indication: Pulmonary arterial hypertension
     Dosage: STRENGTH: 5.0 MG/ML, APPROXIMATELY 0.03187 UG/KG (USING 1.8 ML WITH PUMP RATE 27 MCL/ HOUR)
     Route: 058
     Dates: start: 20230212, end: 20230212
  8. REMODULIN [Suspect]
     Active Substance: TREPROSTINIL
     Dosage: (PUMP RATE 17UL/HR)
     Route: 058
     Dates: start: 20230212, end: 20230212
  9. REMODULIN [Suspect]
     Active Substance: TREPROSTINIL
     Dosage: 0.02243 UG/KG (PUMP RATE19UL/HR USING 1.8ML EVERY 70 HOURS)
     Route: 058
     Dates: start: 20230212, end: 20230212
  10. REMODULIN [Suspect]
     Active Substance: TREPROSTINIL
     Dosage: 0.02243 MICROGRAM PER KILOGRAM
     Route: 058
     Dates: start: 202302
  11. ALDACTONE [Suspect]
     Active Substance: SPIRONOLACTONE
     Dosage: UNK
  12. CARVEDILOL [Suspect]
     Active Substance: CARVEDILOL
     Dosage: UNK

REACTIONS (13)
  - Bradycardia [Recovered/Resolved]
  - Syncope [Recovered/Resolved]
  - Infusion site pain [Recovered/Resolved]
  - Flushing [Recovered/Resolved]
  - Headache [Recovered/Resolved]
  - Nausea [Recovered/Resolved]
  - Fatigue [Recovered/Resolved]
  - Dizziness postural [Recovered/Resolved]
  - Hypotension [Unknown]
  - Malaise [Recovered/Resolved]
  - Incorrect drug administration rate [Unknown]
  - Wrong dose [Unknown]
  - Product label confusion [Unknown]

NARRATIVE: CASE EVENT DATE: 20230101
